FAERS Safety Report 25159575 (Version 2)
Quarter: 2025Q2

REPORT INFORMATION
  Report Type: Spontaneous
  Country: US (occurrence: US)
  Receive Date: 20250404
  Receipt Date: 20250526
  Transmission Date: 20250717
  Serious: Yes (Hospitalization, Other)
  Sender: BIOVITRUM
  Company Number: US-BIOVITRUM-2025-US-002332

PATIENT
  Age: 77 Year
  Sex: Male

DRUGS (1)
  1. VONJO [Suspect]
     Active Substance: PACRITINIB
     Indication: Myelodysplastic syndrome
     Route: 048
     Dates: start: 20240606, end: 20250429

REACTIONS (4)
  - Platelet count decreased [Not Recovered/Not Resolved]
  - Coronary artery occlusion [Unknown]
  - Pneumonia [Unknown]
  - Nasal injury [Unknown]
